FAERS Safety Report 15154271 (Version 1)
Quarter: 2018Q3

REPORT INFORMATION
  Report Type: Report from Study
  Country: US (occurrence: US)
  Receive Date: 20180717
  Receipt Date: 20180717
  Transmission Date: 20181010
  Serious: Yes (Other)
  Sender: FDA-Public Use
  Company Number: US-JNJFOC-20180718067

PATIENT
  Age: 87 Year
  Sex: Female

DRUGS (12)
  1. IMBRUVICA [Suspect]
     Active Substance: IBRUTINIB
     Indication: CHRONIC LYMPHOCYTIC LEUKAEMIA
     Route: 048
     Dates: start: 20160723, end: 20180525
  2. ASPIRIN. [Concomitant]
     Active Substance: ASPIRIN
  3. XARELTO [Concomitant]
     Active Substance: RIVAROXABAN
  4. METOPROLOL. [Concomitant]
     Active Substance: METOPROLOL
  5. FISH OIL [Concomitant]
     Active Substance: FISH OIL
  6. IMBRUVICA [Suspect]
     Active Substance: IBRUTINIB
     Indication: CHRONIC LYMPHOCYTIC LEUKAEMIA
     Route: 048
     Dates: start: 2018
  7. SYNTHROID [Concomitant]
     Active Substance: LEVOTHYROXINE SODIUM
  8. RAMIPRIL. [Concomitant]
     Active Substance: RAMIPRIL
  9. ALENDRONATE [Concomitant]
     Active Substance: ALENDRONATE SODIUM
  10. GLUCOSAMINE [Concomitant]
     Active Substance: GLUCOSAMINE
  11. IMBRUVICA [Suspect]
     Active Substance: IBRUTINIB
     Indication: CHRONIC LYMPHOCYTIC LEUKAEMIA
     Route: 048
     Dates: start: 20180526, end: 20180614
  12. CALCIUM [Concomitant]
     Active Substance: CALCIUM

REACTIONS (3)
  - Incorrect dose administered [Unknown]
  - Internal haemorrhage [Unknown]
  - Off label use [Unknown]

NARRATIVE: CASE EVENT DATE: 20180526
